FAERS Safety Report 6583532-X (Version None)
Quarter: 2010Q1

REPORT INFORMATION
  Report Type: 
  Country: None (occurrence: None)
  Receive Date: 20100216
  Receipt Date: 20100211
  Transmission Date: 20100710
  Serious: Yes (Hospitalization, Other)
  Sender: FDA-Public Use
  Company Number: PHEH2008US08945

PATIENT
  Sex: Male

DRUGS (31)
  1. ELIDEL [Suspect]
     Indication: ECZEMA
     Dosage: UNK
     Route: 061
     Dates: start: 20020301
  2. PROTOPIC [Suspect]
     Indication: ECZEMA
     Dosage: UNK
     Route: 061
     Dates: start: 20020301
  3. ADRIAMYCIN PFS [Concomitant]
     Indication: HODGKIN'S DISEASE
     Dosage: UNK
  4. BLEOMYCIN SULFATE [Concomitant]
     Indication: HODGKIN'S DISEASE
     Dosage: UNK
  5. VINBLASTINE [Concomitant]
     Indication: HODGKIN'S DISEASE
     Dosage: UNK
  6. DACARBAZINE [Concomitant]
     Indication: HODGKIN'S DISEASE
     Dosage: UNK
  7. LOVAZA [Concomitant]
     Dosage: UNK
  8. MULTIPLE VITAMINS [Concomitant]
     Dosage: UNK
  9. ANTIBIOTICS [Concomitant]
     Dosage: UNK
  10. REGLAN [Concomitant]
     Dosage: UNK
  11. ZOFRAN [Concomitant]
     Dosage: UNK
  12. PREDNISONE [Concomitant]
     Dosage: 20 MG / 3.5 TABLETS DAILY
     Route: 048
     Dates: start: 20050101
  13. PANTOPRAZOLE SODIUM [Concomitant]
     Dosage: 40 MG / 1 TABLET EVERY 24 HOURS
     Route: 048
     Dates: start: 20050101
  14. ACETAMINOPHEN [Concomitant]
     Dosage: 325 MG / 1-2 TABLETS EVERY 4-6 HRS
     Route: 048
     Dates: start: 20050101
  15. LEVOFLOXACIN [Concomitant]
     Dosage: 500 MG / 1 TABLET EVERY 24 HOURS
     Dates: start: 20050101
  16. METOCLOPRAMIDE HYDROCHLORIDE [Concomitant]
     Dosage: 10 MG / 1 TABLET QID
     Dates: start: 20050101
  17. DECADRON                                /CAN/ [Concomitant]
     Dosage: UNK
  18. NEUPOGEN [Concomitant]
     Dosage: 480 MCG
  19. PROTONIX [Concomitant]
  20. KEFLEX [Concomitant]
     Dosage: 500 MG, BID
  21. CLARITIN [Concomitant]
  22. FLONASE [Concomitant]
  23. ZYRTEC [Concomitant]
  24. MAXAIR MDI [Concomitant]
  25. ALLEGRA [Concomitant]
  26. ALLOPURINOL [Concomitant]
  27. AMOXICILLIN [Concomitant]
  28. TRIMETHOPRIM [Concomitant]
  29. LORAZEPAM [Concomitant]
  30. PROCHLORPERAZINE [Concomitant]
  31. FLUOCINONIDE [Concomitant]
     Route: 061

REACTIONS (24)
  - ANXIETY [None]
  - BACK PAIN [None]
  - BIOPSY BONE MARROW [None]
  - DIVERTICULUM [None]
  - DRUG TOXICITY [None]
  - EAR PAIN [None]
  - ECZEMA [None]
  - GYNAECOMASTIA [None]
  - HODGKIN'S DISEASE [None]
  - HYPERSENSITIVITY [None]
  - HYPERTENSION [None]
  - INFECTION [None]
  - INTERVERTEBRAL DISC PROTRUSION [None]
  - LYMPHADENECTOMY [None]
  - LYMPHADENOPATHY [None]
  - NEUTROPENIA [None]
  - PLEURAL EFFUSION [None]
  - PULMONARY TOXICITY [None]
  - RED BLOOD CELL SEDIMENTATION RATE INCREASED [None]
  - RHINITIS SEASONAL [None]
  - SINUS POLYP [None]
  - SINUSITIS [None]
  - TUMOUR INVASION [None]
  - VASOGENIC CEREBRAL OEDEMA [None]
